FAERS Safety Report 4286811-4 (Version None)
Quarter: 2004Q1

REPORT INFORMATION
  Report Type: 
  Country: None (occurrence: None)
  Receive Date: 20040204
  Receipt Date: 20040128
  Transmission Date: 20041129
  Serious: Yes (Life-Threatening, Hospitalization)
  Sender: FDA-Public Use
  Company Number: 200322722GDDC

PATIENT
  Age: 51 Year
  Sex: Male

DRUGS (8)
  1. GLYBURIDE [Suspect]
     Indication: DIABETES MELLITUS
     Dosage: 0.625 MG QD PO
     Route: 048
     Dates: start: 20030415, end: 20031030
  2. TICLOPIDINE HCL [Suspect]
     Indication: CAROTID ARTERY DISEASE
     Dosage: 200 MG/DAY PO
     Route: 048
     Dates: start: 20030815, end: 20031031
  3. VOGLIBOSE (BASEN) [Suspect]
     Indication: DIABETES MELLITUS
     Dosage: PO
     Route: 048
     Dates: start: 20030415, end: 20031030
  4. TIZANIDINE HCL [Suspect]
     Indication: BACK PAIN
     Dosage: PO
     Route: 048
     Dates: start: 20030615, end: 20031030
  5. NIFEDIPINE (ADALAT L) [Concomitant]
  6. LANSOPRAZOLE [Concomitant]
  7. DOXAZOSIN MESYLATE [Concomitant]
  8. CALCIUM CARBONATE [Concomitant]

REACTIONS (5)
  - ALANINE AMINOTRANSFERASE INCREASED [None]
  - ASPARTATE AMINOTRANSFERASE INCREASED [None]
  - HEPATIC FUNCTION ABNORMAL [None]
  - LYMPHOCYTE STIMULATION TEST POSITIVE [None]
  - PNEUMONIA [None]
